FAERS Safety Report 14230127 (Version 1)
Quarter: 2017Q4

REPORT INFORMATION
  Report Type: Report from Study
  Country: GB (occurrence: GB)
  Receive Date: 20171128
  Receipt Date: 20171128
  Transmission Date: 20180321
  Serious: Yes (Death, Other)
  Sender: FDA-Public Use
  Company Number: GB-CELGENEUS-GBR-20171104860

PATIENT

DRUGS (2)
  1. AZACITIDINE INJECTABLE [Suspect]
     Active Substance: AZACITIDINE
     Indication: MYELOPROLIFERATIVE NEOPLASM
     Dosage: 75 MILLIGRAM/SQ. METER
     Route: 058
  2. RUXOLITINIB [Suspect]
     Active Substance: RUXOLITINIB
     Indication: MYELOPROLIFERATIVE NEOPLASM
     Route: 048

REACTIONS (21)
  - Nausea [Unknown]
  - Pneumonitis [Unknown]
  - Thrombocytopenia [Unknown]
  - Dyspnoea [Unknown]
  - Pyrexia [Unknown]
  - Hyperkalaemia [Unknown]
  - Disease progression [Unknown]
  - Sepsis [Fatal]
  - Syncope [Unknown]
  - Hypotension [Unknown]
  - Myeloproliferative neoplasm [Fatal]
  - Neutropenia [Unknown]
  - Anaemia [Unknown]
  - Abdominal pain [Unknown]
  - Constipation [Unknown]
  - Acute leukaemia [Unknown]
  - Death [Fatal]
  - Febrile neutropenia [Unknown]
  - Infection [Unknown]
  - Vomiting [Unknown]
  - Injection site reaction [Unknown]
